FAERS Safety Report 9736318 (Version 1)
Quarter: 2013Q4

REPORT INFORMATION
  Report Type: Spontaneous
  Country: FR (occurrence: FR)
  Receive Date: 20131206
  Receipt Date: 20131206
  Transmission Date: 20140711
  Serious: Yes (Hospitalization)
  Sender: FDA-Public Use
  Company Number: FR-ROCHE-1308661

PATIENT
  Age: 85 Year
  Sex: Male

DRUGS (2)
  1. BACTRIM [Suspect]
     Indication: URINARY TRACT INFECTION
     Route: 065
     Dates: start: 20130816, end: 20130819
  2. ROCEPHINE [Suspect]
     Indication: URINARY TRACT INFECTION
     Route: 065
     Dates: start: 20130816, end: 20130819

REACTIONS (2)
  - Neutropenia [Recovered/Resolved]
  - Hepatocellular injury [Recovered/Resolved]
